FAERS Safety Report 23387906 (Version 1)
Quarter: 2024Q1

REPORT INFORMATION
  Report Type: Spontaneous
  Country: US (occurrence: None)
  Receive Date: 20240109
  Receipt Date: 20240109
  Transmission Date: 20240410
  Serious: Yes (Hospitalization, Disabling)
  Sender: FDA-Public Use
  Company Number: None

PATIENT
  Age: 53 Year
  Sex: Female
  Weight: 48.6 kg

DRUGS (1)
  1. ISOVUE 200 [Suspect]
     Active Substance: IOPAMIDOL
     Indication: Product used for unknown indication
     Route: 058
     Dates: start: 20221003, end: 20221003

REACTIONS (13)
  - Blister [None]
  - Scar [None]
  - Rash erythematous [None]
  - Arthralgia [None]
  - Myalgia [None]
  - Abdominal pain upper [None]
  - Fatigue [None]
  - Mouth ulceration [None]
  - Eye pain [None]
  - Paraesthesia [None]
  - Hypoaesthesia [None]
  - Depression [None]
  - Systemic lupus erythematosus [None]

NARRATIVE: CASE EVENT DATE: 20221004
